FAERS Safety Report 10450138 (Version 3)
Quarter: 2014Q3

REPORT INFORMATION
  Report Type: Spontaneous
  Country: DE (occurrence: DE)
  Receive Date: 20140912
  Receipt Date: 20140922
  Transmission Date: 20150326
  Serious: Yes (Death, Other)
  Sender: FDA-Public Use
  Company Number: DE-PFIZER INC-2014250530

PATIENT
  Age: 49 Year
  Sex: Female
  Weight: 68 kg

DRUGS (10)
  1. DOXEPIN [Interacting]
     Active Substance: DOXEPIN
     Indication: DEPRESSION
     Dosage: 20 MG, UNK
     Dates: start: 20130403, end: 20130515
  2. LYRICA [Interacting]
     Active Substance: PREGABALIN
     Indication: DEPRESSION
     Dosage: UNK
     Dates: start: 20130403, end: 20130515
  3. VALDOXAN [Interacting]
     Active Substance: AGOMELATINE
     Indication: DEPRESSION
     Dosage: 25 MG, UNK
     Dates: start: 20130403, end: 20130515
  4. ZOPICLON [Interacting]
     Active Substance: ZOPICLONE
     Indication: SLEEP DISORDER
     Dosage: 3.75 MG, UNK
     Dates: start: 20130403, end: 20130515
  5. ZOPICLON [Interacting]
     Active Substance: ZOPICLONE
     Dosage: 300 MG, 1X/DAY
     Route: 048
     Dates: start: 20130513, end: 20130513
  6. L-THYROXIN [Interacting]
     Active Substance: LEVOTHYROXINE SODIUM
     Indication: THYROID DISORDER
     Dosage: 75 MG, UNK
     Dates: start: 20130403, end: 20130515
  7. SERTRALINE HCL [Suspect]
     Active Substance: SERTRALINE HYDROCHLORIDE
     Indication: DEPRESSION
     Dosage: 100 MG, DAILY
     Dates: start: 20130403, end: 20130515
  8. OMEPRAZOL [Interacting]
     Active Substance: OMEPRAZOLE
     Dosage: 20 MG, UNK
     Dates: start: 20130403, end: 20130515
  9. OLANZAPINE. [Interacting]
     Active Substance: OLANZAPINE
     Indication: DEPRESSION
     Dosage: 2.5 MG, UNK
     Dates: start: 20130403, end: 20130515
  10. ATOSIL [Interacting]
     Active Substance: PROMETHAZINE HYDROCHLORIDE
     Indication: DEPRESSION
     Dosage: UNK
     Dates: start: 20130403, end: 20130515

REACTIONS (3)
  - Completed suicide [Fatal]
  - Overdose [Fatal]
  - Drug interaction [Fatal]

NARRATIVE: CASE EVENT DATE: 20130516
